FAERS Safety Report 22604935 (Version 1)
Quarter: 2023Q2

REPORT INFORMATION
  Report Type: Spontaneous
  Country: US (occurrence: US)
  Receive Date: 20230615
  Receipt Date: 20230615
  Transmission Date: 20230721
  Serious: No
  Sender: FDA-Public Use
  Company Number: US-TAKEDA-2023TUS058047

PATIENT
  Age: 63 Year
  Sex: Female

DRUGS (2)
  1. DEXILANT [Suspect]
     Active Substance: DEXLANSOPRAZOLE
     Indication: Barrett^s oesophagus
     Dosage: 60 MILLIGRAM
     Route: 065
  2. DEXILANT [Suspect]
     Active Substance: DEXLANSOPRAZOLE
     Indication: Gastrooesophageal reflux disease

REACTIONS (2)
  - Extra dose administered [Unknown]
  - No adverse event [Unknown]
